FAERS Safety Report 5750127-7 (Version None)
Quarter: 2008Q2

REPORT INFORMATION
  Report Type: 
  Country: None (occurrence: None)
  Receive Date: 20080527
  Receipt Date: 20080516
  Transmission Date: 20081010
  Serious: Yes (Death)
  Sender: FDA-Public Use
  Company Number: JP-PFIZER INC-2008026791

PATIENT
  Age: 56 Year
  Sex: Male

DRUGS (15)
  1. ZOLOFT [Suspect]
     Indication: DEPRESSION
     Dosage: DAILY DOSE:100MG
     Route: 048
  2. ADEFOVIR DIPIVOXIL KIT [Concomitant]
     Route: 048
  3. LAMIVUDINE [Concomitant]
     Route: 048
  4. LASIX [Concomitant]
  5. TORSEMIDE [Concomitant]
     Route: 048
  6. PORTOLAC [Concomitant]
     Route: 048
  7. SLOW-K [Concomitant]
     Route: 048
  8. LACTULOSE [Concomitant]
     Route: 048
  9. STROCAIN [Concomitant]
     Route: 048
  10. DOMPERIDONE [Concomitant]
     Route: 048
  11. LAFUTIDINE [Concomitant]
     Route: 048
  12. MEILAX [Concomitant]
     Route: 048
  13. ROHYPNOL [Concomitant]
  14. ALL OTHER THERAPEUTIC PRODUCTS [Concomitant]
     Route: 054
  15. KAYEXALATE [Concomitant]
     Route: 048

REACTIONS (2)
  - HEPATITIS FULMINANT [None]
  - LIVER DISORDER [None]
